FAERS Safety Report 24142420 (Version 2)
Quarter: 2024Q3

REPORT INFORMATION
  Report Type: Report from Study
  Country: GB (occurrence: GB)
  Receive Date: 20240726
  Receipt Date: 20240729
  Transmission Date: 20241017
  Serious: Yes (Other)
  Sender: SANDOZ
  Company Number: GB-SANDOZ-SDZ2024GB068276

PATIENT
  Sex: Male

DRUGS (3)
  1. HYRIMOZ [Suspect]
     Active Substance: ADALIMUMAB-ADAZ
     Indication: Ankylosing spondylitis
     Dosage: 40 MG (40MG/0.4ML), Q2W (EOW)
     Route: 058
  2. Sustanon [Concomitant]
     Indication: Product used for unknown indication
     Route: 065
  3. Sustanon [Concomitant]
     Indication: Product used for unknown indication
     Route: 065

REACTIONS (4)
  - Shock [Unknown]
  - Malaise [Unknown]
  - Rash [Unknown]
  - Rash pruritic [Unknown]
